FAERS Safety Report 23732738 (Version 1)
Quarter: 2024Q2

REPORT INFORMATION
  Report Type: Spontaneous
  Country: US (occurrence: US)
  Receive Date: 20240411
  Receipt Date: 20240411
  Transmission Date: 20240717
  Serious: Yes (Death, Other)
  Sender: FDA-Public Use
  Company Number: US-AMGEN-USASP2024069340

PATIENT
  Age: 34 Year
  Sex: Female

DRUGS (2)
  1. RITUXIMAB [Suspect]
     Active Substance: RITUXIMAB
     Indication: Complications of transplanted heart
     Dosage: UNK
     Route: 065
  2. HUMAN IMMUNOGLOBULIN G [Concomitant]
     Active Substance: HUMAN IMMUNOGLOBULIN G
     Indication: Complications of transplanted heart
     Route: 042

REACTIONS (9)
  - Death [Fatal]
  - Natural killer-cell lymphoblastic lymphoma [Unknown]
  - Haemophagocytic lymphohistiocytosis [Unknown]
  - Heart transplant rejection [Unknown]
  - Viral myocarditis [Unknown]
  - Epstein-Barr virus infection [Unknown]
  - Drug effective for unapproved indication [Unknown]
  - Off label use [Unknown]
  - Oral herpes [Unknown]
